FAERS Safety Report 25390642 (Version 1)
Quarter: 2025Q2

REPORT INFORMATION
  Report Type: Spontaneous
  Country: FR (occurrence: FR)
  Receive Date: 20250603
  Receipt Date: 20250603
  Transmission Date: 20250716
  Serious: Yes (Hospitalization, Other)
  Sender: EPIC PHARM
  Company Number: FR-EPICPHARMA-FR-2025EPCLIT00665

PATIENT
  Age: 35 Year
  Sex: Male

DRUGS (4)
  1. PREGABALIN [Suspect]
     Active Substance: PREGABALIN
     Indication: Product used for unknown indication
     Route: 065
  2. PREGABALIN [Suspect]
     Active Substance: PREGABALIN
     Route: 065
  3. PREGABALIN [Suspect]
     Active Substance: PREGABALIN
     Route: 065
  4. PALIPERIDONE [Concomitant]
     Active Substance: PALIPERIDONE
     Indication: Schizophrenia
     Route: 065

REACTIONS (7)
  - Hallucination [Unknown]
  - Confusional state [Unknown]
  - Withdrawal syndrome [Unknown]
  - Toxicity to various agents [Unknown]
  - Drug use disorder [Unknown]
  - Drug dependence [Unknown]
  - Intentional overdose [Unknown]
